FAERS Safety Report 9176303 (Version 2)
Quarter: 2013Q4

REPORT INFORMATION
  Report Type: Spontaneous
  Country: US (occurrence: US)
  Receive Date: 20130321
  Receipt Date: 20131108
  Transmission Date: 20140711
  Serious: No
  Sender: FDA-Public Use
  Company Number: US-BIOGENIDEC-2013BI024232

PATIENT
  Sex: Female

DRUGS (1)
  1. TYSABRI [Suspect]
     Indication: MULTIPLE SCLEROSIS
     Route: 042
     Dates: start: 20080611

REACTIONS (5)
  - Depression [Not Recovered/Not Resolved]
  - Suicidal ideation [Unknown]
  - Hypoaesthesia [Unknown]
  - VIIth nerve paralysis [Unknown]
  - Stress [Unknown]
